FAERS Safety Report 8806037 (Version 1)
Quarter: 2012Q4

REPORT INFORMATION
  Report Type: 
  Country: US (occurrence: US)
  Receive Date: 20120925
  Receipt Date: 20120925
  Transmission Date: 20130627
  Serious: Yes (Hospitalization)
  Sender: FDA-Public Use
  Company Number: US-PFIZER INC-2012234557

PATIENT
  Age: 50 Year
  Sex: Male
  Weight: 113 kg

DRUGS (2)
  1. VIAGRA [Suspect]
     Dosage: 100 mg, daily
     Dates: start: 2004
  2. METFORMIN [Concomitant]
     Indication: DIABETES MELLITUS
     Dosage: 1000 mg, 2x/day
     Dates: start: 2004

REACTIONS (1)
  - Pharyngitis [Recovered/Resolved]
